FAERS Safety Report 16114527 (Version 1)
Quarter: 2019Q1

REPORT INFORMATION
  Report Type: Spontaneous
  Country: DE (occurrence: DE)
  Receive Date: 20190325
  Receipt Date: 20190325
  Transmission Date: 20190418
  Serious: Yes (Other)
  Sender: FDA-Public Use
  Company Number: DE-TEVA-2019-DE-1027476

PATIENT
  Age: 68 Year
  Sex: Female

DRUGS (2)
  1. MYLEPSINUM [Suspect]
     Active Substance: PRIMIDONE
     Dosage: .75 DOSAGE FORMS DAILY;
     Route: 065
  2. TEGRETAL [Interacting]
     Active Substance: CARBAMAZEPINE
     Indication: EPILEPSY
     Route: 065
     Dates: start: 1993

REACTIONS (3)
  - Anticonvulsant drug level below therapeutic [Recovered/Resolved]
  - Drug interaction [Recovered/Resolved]
  - Seizure [Recovered/Resolved]
